FAERS Safety Report 10712936 (Version 1)
Quarter: 2015Q1

REPORT INFORMATION
  Report Type: Spontaneous
  Country: US (occurrence: None)
  Receive Date: 20150114
  Receipt Date: 20150114
  Transmission Date: 20150721
  Serious: No
  Sender: FDA-Public Use
  Company Number: None

PATIENT
  Age: 59 Year
  Sex: Female
  Weight: 73.94 kg

DRUGS (1)
  1. PAXIL [Suspect]
     Active Substance: PAROXETINE HYDROCHLORIDE
     Indication: DRUG THERAPY
     Dosage: 30; 1/2 FOR SIX DAYS
     Route: 048
     Dates: start: 20141223, end: 20141230

REACTIONS (2)
  - Depression [None]
  - Visual impairment [None]

NARRATIVE: CASE EVENT DATE: 20141230
